FAERS Safety Report 4639098-4 (Version None)
Quarter: 2005Q2

REPORT INFORMATION
  Report Type: 
  Country: None (occurrence: None)
  Receive Date: 20050418
  Receipt Date: 20050405
  Transmission Date: 20051028
  Serious: Yes (Life-Threatening, Other)
  Sender: FDA-Public Use
  Company Number: 213676

PATIENT
  Age: 42 Year
  Sex: Female
  Weight: 79.5 kg

DRUGS (1)
  1. MABTHERA (RITUXIMAB) CONC FOR SOLUTION FOR INFUSION [Suspect]
     Indication: LYMPHOMA
     Dosage: 650 MG, INTRAVENOUS
     Route: 042
     Dates: start: 20050301, end: 20050301

REACTIONS (5)
  - BRADYCARDIA [None]
  - BRADYPNOEA [None]
  - HYPERTENSIVE CRISIS [None]
  - NAUSEA [None]
  - SYNCOPE [None]
